FAERS Safety Report 14978322 (Version 2)
Quarter: 2018Q2

REPORT INFORMATION
  Report Type: Spontaneous
  Country: IT (occurrence: IT)
  Receive Date: 20180606
  Receipt Date: 20180606
  Transmission Date: 20180711
  Serious: Yes (Other)
  Sender: FDA-Public Use
  Company Number: PHHY2018IT009480

PATIENT
  Age: 40 Year
  Sex: Female

DRUGS (1)
  1. CICLOSPORIN [Suspect]
     Active Substance: CYCLOSPORINE
     Indication: URTICARIA CHRONIC
     Dosage: 200 MG, QD
     Route: 065
     Dates: start: 20180113, end: 20180114

REACTIONS (5)
  - Abdominal pain upper [Recovering/Resolving]
  - Urticaria [Recovering/Resolving]
  - Malaise [Recovering/Resolving]
  - Syncope [Recovering/Resolving]
  - Urinary retention [Recovering/Resolving]

NARRATIVE: CASE EVENT DATE: 20180113
